FAERS Safety Report 15332348 (Version 10)
Quarter: 2021Q1

REPORT INFORMATION
  Report Type: Spontaneous
  Country: US (occurrence: US)
  Receive Date: 20180829
  Receipt Date: 20210121
  Transmission Date: 20210419
  Serious: Yes (Other)
  Sender: FDA-Public Use
  Company Number: US-INCYTE CORPORATION-2018IN008459

PATIENT

DRUGS (10)
  1. JAKAFI [Suspect]
     Active Substance: RUXOLITINIB
     Dosage: 15 MILLIGRAM, BID
     Route: 048
     Dates: start: 20180801
  2. JAKAFI [Suspect]
     Active Substance: RUXOLITINIB
     Indication: SPLENOMEGALY
     Dosage: 15 MG, BID
     Route: 048
  3. JAKAFI [Suspect]
     Active Substance: RUXOLITINIB
     Dosage: 15 MG, BID
     Route: 048
     Dates: start: 20180803
  4. JAKAFI [Suspect]
     Active Substance: RUXOLITINIB
     Dosage: 15 MILLIGRAM, BID
     Route: 048
     Dates: start: 20180802
  5. JAKAFI [Suspect]
     Active Substance: RUXOLITINIB
     Dosage: 15 MG, BID
     Route: 048
  6. JAKAFI [Suspect]
     Active Substance: RUXOLITINIB
     Indication: ESSENTIAL THROMBOCYTHAEMIA
     Dosage: 15 MG, BID
     Route: 048
     Dates: start: 20180803
  7. JAKAFI [Suspect]
     Active Substance: RUXOLITINIB
     Dosage: 15 MG, BID
     Route: 048
     Dates: start: 20180803
  8. JAKAFI [Suspect]
     Active Substance: RUXOLITINIB
     Dosage: 15 MILLIGRAM, BID
     Route: 048
     Dates: start: 20180801
  9. JAKAFI [Suspect]
     Active Substance: RUXOLITINIB
     Indication: THROMBOCYTOPENIA
     Dosage: 15 MG, BID
     Route: 048
  10. JAKAFI [Suspect]
     Active Substance: RUXOLITINIB
     Dosage: 15 MILLIGRAM, BID
     Route: 048
     Dates: start: 20180803

REACTIONS (24)
  - Atrial fibrillation [Unknown]
  - Chest discomfort [Unknown]
  - Abdominal discomfort [Unknown]
  - Alopecia [Not Recovered/Not Resolved]
  - COVID-19 [Unknown]
  - Dizziness [Unknown]
  - Herpes zoster [Unknown]
  - Blood pressure decreased [Unknown]
  - Dry skin [Not Recovered/Not Resolved]
  - Off label use [Unknown]
  - Stomatitis [Unknown]
  - Chromaturia [Unknown]
  - Asthenia [Unknown]
  - Dry mouth [Not Recovered/Not Resolved]
  - Contusion [Unknown]
  - Erythropoiesis abnormal [Unknown]
  - Skin disorder [Unknown]
  - Red blood cell count abnormal [Unknown]
  - General physical health deterioration [Not Recovered/Not Resolved]
  - Heart rate irregular [Unknown]
  - Blood pressure fluctuation [Unknown]
  - Myelofibrosis [Unknown]
  - Fatigue [Unknown]
  - Platelet count decreased [Unknown]

NARRATIVE: CASE EVENT DATE: 20180803
